FAERS Safety Report 8453654-7 (Version None)
Quarter: 2012Q2

REPORT INFORMATION
  Report Type: 
  Country: None (occurrence: None)
  Receive Date: 20120620
  Receipt Date: 20120612
  Transmission Date: 20120825
  Serious: Yes (Hospitalization, Other)
  Sender: FDA-Public Use
  Company Number: US-BAYER-2012-058028

PATIENT
  Age: 68 Year
  Sex: Female
  Weight: 45.351 kg

DRUGS (6)
  1. LYRICA [Concomitant]
     Dosage: 50 MG, BID
     Dates: start: 20120517
  2. ATIVAN [Concomitant]
     Dosage: 50 MG, ONCE
     Dates: start: 20120517
  3. ATIVAN [Concomitant]
     Dosage: 25 MG IN THE MORNIG AND 50 MG IN THE EVE
  4. SYNTHROID [Concomitant]
     Dosage: 75 MCG DAILY
  5. CIPROFLOXACIN HCL [Suspect]
  6. UNCODEABLE ^UNCLASSIFIABLE^ [Concomitant]
     Indication: CANDIDIASIS
     Dosage: UNK
     Dates: start: 20120101

REACTIONS (11)
  - PAIN [None]
  - NERVOUSNESS [None]
  - HYPOTHYROIDISM [None]
  - HERPES ZOSTER [None]
  - EMOTIONAL DISORDER [None]
  - VOMITING [None]
  - INSOMNIA [None]
  - CANDIDIASIS [None]
  - VERTIGO [None]
  - CONVERSION DISORDER [None]
  - THYROID FUNCTION TEST ABNORMAL [None]
